FAERS Safety Report 17498323 (Version 2)
Quarter: 2020Q1

REPORT INFORMATION
  Report Type: Spontaneous
  Country: US (occurrence: US)
  Receive Date: 20200304
  Receipt Date: 20200323
  Transmission Date: 20200409
  Serious: Yes (Other)
  Sender: FDA-Public Use
  Company Number: NVSC2020US060654

PATIENT
  Age: 86 Year
  Sex: Male

DRUGS (1)
  1. BEOVU [Suspect]
     Active Substance: BROLUCIZUMAB-DBLL
     Indication: NEOVASCULAR AGE-RELATED MACULAR DEGENERATION
     Dosage: 0.05 ML, QMO
     Route: 031
     Dates: start: 20200113, end: 20200210

REACTIONS (5)
  - Uveitis [Recovering/Resolving]
  - Vision blurred [Unknown]
  - Lacrimation increased [Unknown]
  - Vitreous floaters [Unknown]
  - Eye inflammation [Unknown]

NARRATIVE: CASE EVENT DATE: 202002
